FAERS Safety Report 14122834 (Version 2)
Quarter: 2018Q2

REPORT INFORMATION
  Report Type: Report from Study
  Country: JP (occurrence: JP)
  Receive Date: 20171025
  Receipt Date: 20180427
  Transmission Date: 20180711
  Serious: Yes (Death, Hospitalization)
  Sender: FDA-Public Use
  Company Number: JP-ACTELION-A-CH2017-161316

PATIENT
  Age: 63 Year
  Sex: Female

DRUGS (12)
  1. LOXONIN [Concomitant]
     Active Substance: LOXOPROFEN SODIUM
  2. GASTER [Concomitant]
     Active Substance: FAMOTIDINE
  3. MINOMYCIN [Concomitant]
     Active Substance: MINOCYCLINE HYDROCHLORIDE
  4. MAGNESIUM OXIDE. [Concomitant]
     Active Substance: MAGNESIUM OXIDE
  5. ADCIRCA [Concomitant]
     Active Substance: TADALAFIL
  6. OXYGEN. [Concomitant]
     Active Substance: OXYGEN
  7. LASIX [Concomitant]
     Active Substance: FUROSEMIDE
  8. TRACLEER [Concomitant]
     Active Substance: BOSENTAN
     Indication: PULMONARY ARTERIAL HYPERTENSION
  9. BACTRAMIN [Concomitant]
     Active Substance: SULFAMETHOXAZOLE\TRIMETHOPRIM
  10. OPSUMIT [Suspect]
     Active Substance: MACITENTAN
     Indication: PULMONARY ARTERIAL HYPERTENSION
     Dosage: 10 MG, OD
     Route: 048
     Dates: start: 20160928, end: 20161220
  11. BONALON [Concomitant]
     Active Substance: ALENDRONATE SODIUM
  12. PREDONINE [Concomitant]
     Active Substance: PREDNISOLONE

REACTIONS (2)
  - Pulmonary hypertension [Fatal]
  - Cardiac failure [Fatal]

NARRATIVE: CASE EVENT DATE: 20161207
